FAERS Safety Report 25060460 (Version 1)
Quarter: 2025Q1

REPORT INFORMATION
  Report Type: Spontaneous
  Country: US (occurrence: US)
  Receive Date: 20250310
  Receipt Date: 20250310
  Transmission Date: 20250408
  Serious: Yes (Other)
  Sender: TEVA
  Company Number: US-TEVA-VS-3305028

PATIENT
  Age: 66 Year
  Sex: Female

DRUGS (3)
  1. AUSTEDO XR [Suspect]
     Active Substance: DEUTETRABENAZINE
     Indication: Tardive dyskinesia
     Route: 065
     Dates: start: 2024, end: 2024
  2. AUSTEDO XR [Suspect]
     Active Substance: DEUTETRABENAZINE
     Indication: Tardive dyskinesia
     Route: 065
     Dates: start: 202409
  3. AUSTEDO XR [Suspect]
     Active Substance: DEUTETRABENAZINE
     Indication: Tardive dyskinesia
     Route: 065
     Dates: start: 202502

REACTIONS (4)
  - Tardive dyskinesia [Unknown]
  - Living in residential institution [Unknown]
  - Dyskinesia [Unknown]
  - Bruxism [Unknown]

NARRATIVE: CASE EVENT DATE: 20250201
